FAERS Safety Report 19713469 (Version 2)
Quarter: 2022Q2

REPORT INFORMATION
  Report Type: Report from Study
  Country: US (occurrence: US)
  Receive Date: 20210817
  Receipt Date: 20220419
  Transmission Date: 20220721
  Serious: Yes (Other)
  Sender: FDA-Public Use
  Company Number: US-JAZZ-2021-US-004298

PATIENT
  Sex: Male

DRUGS (7)
  1. XYREM [Suspect]
     Active Substance: SODIUM OXYBATE
     Indication: Narcolepsy
     Dosage: 2.25 GRAM, BID
     Route: 048
     Dates: start: 201702, end: 201702
  2. XYREM [Suspect]
     Active Substance: SODIUM OXYBATE
     Indication: Cataplexy
     Dosage: DOSE ADJUSTMENT
     Route: 048
     Dates: start: 201702, end: 202008
  3. XYREM [Suspect]
     Active Substance: SODIUM OXYBATE
     Dosage: 6 GRAM, BID
     Route: 048
     Dates: start: 202009, end: 202101
  4. LYSINE HCL [Concomitant]
     Dosage: UNK
     Dates: start: 20000316
  5. AMLODIPINE [Concomitant]
     Active Substance: AMLODIPINE BESYLATE
     Indication: Hypertension
  6. ALBUTEROL SULFATE [Concomitant]
     Active Substance: ALBUTEROL SULFATE
     Indication: Asthma
  7. MUCINEX [Concomitant]
     Active Substance: GUAIFENESIN
     Indication: Illness

REACTIONS (11)
  - Hypertension [Recovering/Resolving]
  - Restless legs syndrome [Unknown]
  - Obsessive-compulsive disorder [Unknown]
  - Bronchial hyperreactivity [Unknown]
  - Asthma [Unknown]
  - Dyslexia [Unknown]
  - Dysgraphia [Unknown]
  - Illness [Unknown]
  - Weight increased [Unknown]
  - Sleep apnoea syndrome [Unknown]
  - Therapy interrupted [Unknown]
